FAERS Safety Report 25435126 (Version 1)
Quarter: 2025Q2

REPORT INFORMATION
  Report Type: Report from Study
  Country: CA (occurrence: CA)
  Receive Date: 20250613
  Receipt Date: 20250613
  Transmission Date: 20250716
  Serious: Yes (Other)
  Sender: SANDOZ
  Company Number: CA-SANDOZ-SDZ2023CA020020

PATIENT
  Sex: Male

DRUGS (1)
  1. ERELZI [Suspect]
     Active Substance: ETANERCEPT-SZZS
     Indication: Rheumatoid arthritis
     Dosage: 50 MG, QW,25 MG/0.5 ML SOLUTION FOR INJECTION
     Route: 058
     Dates: start: 20230413

REACTIONS (3)
  - Neurosurgery [Unknown]
  - General physical health deterioration [Unknown]
  - Product use issue [Unknown]
